FAERS Safety Report 8288848-7 (Version None)
Quarter: 2012Q2

REPORT INFORMATION
  Report Type: 
  Country: None (occurrence: None)
  Receive Date: 20120417
  Receipt Date: 20120409
  Transmission Date: 20120825
  Serious: No
  Sender: FDA-Public Use
  Company Number: US-BIOGENIDEC-2012BI012065

PATIENT
  Age: 37 Year
  Sex: Male

DRUGS (1)
  1. AVONEX [Suspect]
     Indication: MULTIPLE SCLEROSIS
     Route: 030
     Dates: start: 20120407

REACTIONS (6)
  - HYPERHIDROSIS [None]
  - HEART RATE INCREASED [None]
  - MUSCLE SPASMS [None]
  - FALL [None]
  - CHILLS [None]
  - URINARY INCONTINENCE [None]
